FAERS Safety Report 9275265 (Version 4)
Quarter: 2014Q3

REPORT INFORMATION
  Report Type: Spontaneous
  Country: US (occurrence: US)
  Receive Date: 20130507
  Receipt Date: 20140918
  Transmission Date: 20150326
  Serious: Yes (Hospitalization, Congenital Anomaly, Other)
  Sender: FDA-Public Use
  Company Number: US-PFIZER INC-2013138632

PATIENT
  Sex: Female

DRUGS (23)
  1. PERCOCET 5/325 [Concomitant]
     Indication: PAIN
     Dosage: 5/325 MG TWO TABLETS EVERY FOUR HOURS AS NEEDED
     Route: 064
     Dates: start: 20080115
  2. IMODIUM [Concomitant]
     Active Substance: LOPERAMIDE HYDROCHLORIDE
     Dosage: 2 MG, AS NEEDED
     Route: 064
  3. TUMS [Concomitant]
     Active Substance: CALCIUM CARBONATE
     Indication: DYSPEPSIA
     Dosage: UNK, AS NEEDED
     Route: 064
  4. SEASONALE [Concomitant]
     Active Substance: ETHINYL ESTRADIOL\LEVONORGESTREL
     Dosage: UNK
     Route: 064
  5. TYLENOL [Concomitant]
     Active Substance: ACETAMINOPHEN
     Indication: PAIN
     Dosage: UNK, 4X/DAY (AS NEEDED )
     Route: 064
     Dates: start: 20071219
  6. PROMETHEGAN [Concomitant]
     Active Substance: PROMETHAZINE HYDROCHLORIDE
     Indication: NAUSEA
     Dosage: 25 MG, 3X/DAY
     Route: 064
     Dates: start: 20070222
  7. EFFEXOR XR [Concomitant]
     Active Substance: VENLAFAXINE HYDROCHLORIDE
     Indication: DEPRESSION
     Dosage: 150 MG, 1X/DAY
     Route: 064
     Dates: start: 20070608
  8. EFFEXOR XR [Concomitant]
     Active Substance: VENLAFAXINE HYDROCHLORIDE
     Dosage: 75 MG, 1X/DAY
     Route: 064
     Dates: start: 20070717
  9. DARVOCET-N 100 [Concomitant]
     Active Substance: ACETAMINOPHEN\PROPOXYPHENE NAPSYLATE
     Indication: PAIN
     Dosage: UNK, 4X/DAY (AS NEEDED)
     Route: 064
  10. MULTIVITAMINS [Concomitant]
     Active Substance: VITAMINS
     Dosage: UNK
     Route: 064
  11. HYDROCODONE/APAP [Concomitant]
     Active Substance: ACETAMINOPHEN\HYDROCODONE
     Dosage: UNK
     Route: 064
  12. PHENERGAN [Concomitant]
     Active Substance: PROMETHAZINE HYDROCHLORIDE
     Dosage: 25 MG, EVERY 4 TO 6 HOURS AS NEEDED DAILY
     Route: 064
     Dates: start: 20070608
  13. IBUPROFEN. [Concomitant]
     Active Substance: IBUPROFEN
     Dosage: UNK
     Route: 064
  14. TAMIFLU [Concomitant]
     Active Substance: OSELTAMIVIR PHOSPHATE
     Dosage: UNK
     Route: 064
  15. LEVAQUIN [Concomitant]
     Active Substance: LEVOFLOXACIN
     Dosage: UNK
     Route: 064
  16. EFFEXOR [Suspect]
     Active Substance: VENLAFAXINE HYDROCHLORIDE
     Dosage: 225 MG, DAILY
     Route: 064
     Dates: start: 20070510, end: 200801
  17. ONDANSETRON [Concomitant]
     Active Substance: ONDANSETRON
     Dosage: 4 MG, 3X/DAY
     Route: 064
     Dates: start: 20070815
  18. PRENATAL VITAMINS [Concomitant]
     Active Substance: VITAMINS
     Dosage: UNK
     Route: 064
  19. PROMETHAZINE [Concomitant]
     Active Substance: PROMETHAZINE\PROMETHAZINE HYDROCHLORIDE
     Dosage: 25 MG, FOUR TO SIX HOURS AS NEEEDED
     Route: 064
     Dates: start: 20070608
  20. PRENATAL [Concomitant]
     Active Substance: VITAMINS
     Dosage: UNK, 1X/DAY
     Route: 064
     Dates: start: 20070613
  21. AMBIEN [Concomitant]
     Active Substance: ZOLPIDEM TARTRATE
     Dosage: 10 MG, UNK
     Route: 064
  22. BENZONATATE. [Concomitant]
     Active Substance: BENZONATATE
     Dosage: UNK
     Route: 064
  23. TEQUIN [Concomitant]
     Active Substance: GATIFLOXACIN
     Dosage: UNK
     Route: 064

REACTIONS (28)
  - Joint dislocation [Unknown]
  - Postoperative respiratory failure [Unknown]
  - Asthma [Unknown]
  - Speech disorder [Unknown]
  - Maternal exposure during pregnancy [Unknown]
  - Larsen syndrome [Unknown]
  - Developmental delay [Unknown]
  - Congenital pulmonary hypertension [Unknown]
  - Congenital tracheomalacia [Unknown]
  - Joint hyperextension [Unknown]
  - Hypoglycaemia neonatal [Unknown]
  - Hydromyelia [Unknown]
  - Musculoskeletal stiffness [Unknown]
  - Tricuspid valve incompetence [Unknown]
  - Patent ductus arteriosus [Recovered/Resolved]
  - Bronchial hyperreactivity [Unknown]
  - Bone density decreased [Unknown]
  - Tendon disorder [Unknown]
  - Developmental hip dysplasia [Unknown]
  - Congenital bronchomalacia [Unknown]
  - Cervical vertebral fracture [Unknown]
  - Congenital multiplex arthrogryposis [Unknown]
  - Laryngomalacia [Unknown]
  - Motor developmental delay [Unknown]
  - Spinal deformity [Unknown]
  - Congenital spinal cord anomaly [Unknown]
  - Hypertonia [Unknown]
  - Talipes [Unknown]

NARRATIVE: CASE EVENT DATE: 20080116
